FAERS Safety Report 18452526 (Version 2)
Quarter: 2020Q4

REPORT INFORMATION
  Report Type: Other
  Country: DE (occurrence: DE)
  Receive Date: 20201102
  Receipt Date: 20201124
  Transmission Date: 20210114
  Serious: Yes (Other)
  Sender: FDA-Public Use
  Company Number: DE-ROCHE-2703742

PATIENT

DRUGS (11)
  1. SULFAMETHOXAZOLE/TRIMETHOPRIM [Concomitant]
     Active Substance: SULFAMETHOXAZOLE\TRIMETHOPRIM
  2. PREDNISOLONE. [Suspect]
     Active Substance: PREDNISOLONE
     Dosage: CYCLE 5 (1 CYCLE = 2 WEEKS)
  3. METHOTREXATE. [Suspect]
     Active Substance: METHOTREXATE
     Indication: CENTRAL NERVOUS SYSTEM LYMPHOMA
     Route: 042
  4. IFOSFAMIDE. [Suspect]
     Active Substance: IFOSFAMIDE
     Indication: CENTRAL NERVOUS SYSTEM LYMPHOMA
     Dosage: AS A 1-H INFUSION WITH SODIUM 2-MERCAPTOETHANE SULFONATE PROTECTION
     Route: 042
  5. CYTARABINE. [Suspect]
     Active Substance: CYTARABINE
     Route: 042
  6. PREDNISOLONE. [Suspect]
     Active Substance: PREDNISOLONE
     Indication: CENTRAL NERVOUS SYSTEM LYMPHOMA
  7. CYTARABINE. [Suspect]
     Active Substance: CYTARABINE
     Indication: CENTRAL NERVOUS SYSTEM LYMPHOMA
     Dosage: AS A 3-H INFUSION.
     Route: 042
  8. ACICLOVIR [Concomitant]
     Active Substance: ACYCLOVIR
  9. METHOTREXATE. [Suspect]
     Active Substance: METHOTREXATE
     Route: 042
  10. SODIUM 2-MERCAPTOETHANESULFONATE [Concomitant]
  11. RITUXIMAB. [Suspect]
     Active Substance: RITUXIMAB
     Indication: CENTRAL NERVOUS SYSTEM LYMPHOMA
     Route: 042

REACTIONS (13)
  - Neutropenia [Unknown]
  - Anaemia [Unknown]
  - Tachyarrhythmia [Unknown]
  - Lymphopenia [Unknown]
  - Retroperitoneal haemorrhage [Unknown]
  - Mucosal inflammation [Unknown]
  - Transaminases increased [Unknown]
  - Nausea [Unknown]
  - Infection [Unknown]
  - Thrombocytopenia [Unknown]
  - Blood potassium decreased [Unknown]
  - Leukopenia [Unknown]
  - Thrombosis [Unknown]
